FAERS Safety Report 22013208 (Version 1)
Quarter: 2023Q1

REPORT INFORMATION
  Report Type: Spontaneous
  Country: US (occurrence: US)
  Receive Date: 20230220
  Receipt Date: 20230220
  Transmission Date: 20230417
  Serious: Yes (Other)
  Sender: FDA-Public Use
  Company Number: US-ALLERGAN-2304251US

PATIENT
  Sex: Male

DRUGS (1)
  1. QULIPTA [Suspect]
     Active Substance: ATOGEPANT
     Indication: Product used for unknown indication
     Dosage: UNK
     Dates: start: 20220310

REACTIONS (9)
  - Shoulder arthroplasty [Unknown]
  - Shoulder operation [Unknown]
  - Accident [Unknown]
  - Anxiety [Recovering/Resolving]
  - Visual impairment [Recovering/Resolving]
  - Fall [Recovered/Resolved]
  - Head injury [Unknown]
  - Back disorder [Unknown]
  - Migraine [Recovering/Resolving]
